FAERS Safety Report 14190276 (Version 1)
Quarter: 2017Q4

REPORT INFORMATION
  Report Type: Spontaneous
  Country: US (occurrence: US)
  Receive Date: 20171115
  Receipt Date: 20171115
  Transmission Date: 20180321
  Serious: Yes (Life-Threatening, Other)
  Sender: FDA-Public Use
  Company Number: US-WEST-WARD PHARMACEUTICALS CORP.-US-H14001-17-04348

PATIENT
  Age: 66 Year
  Sex: Male

DRUGS (1)
  1. CHLORPROMAZINE. [Suspect]
     Active Substance: CHLORPROMAZINE
     Indication: SCHIZOPHRENIA
     Route: 065

REACTIONS (2)
  - Blood thyroid stimulating hormone decreased [Unknown]
  - Neuroleptic malignant syndrome [Recovering/Resolving]
